FAERS Safety Report 5019936-6 (Version None)
Quarter: 2006Q2

REPORT INFORMATION
  Report Type: 
  Country: None (occurrence: None)
  Receive Date: 20060607
  Receipt Date: 20060601
  Transmission Date: 20061013
  Serious: Yes (Other)
  Sender: FDA-Public Use
  Company Number: 2006AC01038

PATIENT
  Age: 942 Month
  Sex: Male

DRUGS (8)
  1. ZOLADEX [Suspect]
     Indication: PROSTATE CANCER
     Route: 058
     Dates: start: 20060120, end: 20060120
  2. SELOKEEN [Concomitant]
  3. PROMOCARD [Concomitant]
  4. ALLOPURINOL [Concomitant]
  5. FUROSEMIDE [Concomitant]
  6. SIMVASTATIN [Concomitant]
  7. OMNIC [Concomitant]
  8. CASODEX [Concomitant]
     Indication: PROSTATE CANCER

REACTIONS (2)
  - ERYTHEMA [None]
  - SKIN REACTION [None]
